FAERS Safety Report 17110977 (Version 1)
Quarter: 2019Q4

REPORT INFORMATION
  Report Type: Spontaneous
  Country: US (occurrence: US)
  Receive Date: 20191203
  Receipt Date: 20191203
  Transmission Date: 20200122
  Serious: No
  Sender: FDA-Public Use
  Company Number: None

PATIENT
  Age: 49 Year
  Sex: Female
  Weight: 123.8 kg

DRUGS (14)
  1. DULAGLITIDE (TRULICITY) 1.5 MG [Concomitant]
  2. CALCIUM-VITAMIN D [Concomitant]
     Active Substance: CALCIUM\VITAMIN D
  3. INSULIN DEGLUDEC (TRESIBA) [Concomitant]
  4. LOSARTAN 25 MG [Concomitant]
     Active Substance: LOSARTAN
  5. OMEGA-3 FATTY AVIDS [Concomitant]
  6. TURMERIC SUPPLEMENT [Concomitant]
  7. DESOGESTREL-ETHINYL ESTRADIOL [Concomitant]
     Active Substance: DESOGESTREL\ETHINYL ESTRADIOL
  8. MULTIVITAMIN [Concomitant]
     Active Substance: VITAMINS
  9. INVOKANA [Suspect]
     Active Substance: CANAGLIFLOZIN
     Indication: TYPE 2 DIABETES MELLITUS
     Route: 048
  10. INVOKANA [Suspect]
     Active Substance: CANAGLIFLOZIN
     Indication: HYPERGLYCAEMIA
     Route: 048
  11. ATORVASTATIN 40 MG [Concomitant]
     Active Substance: ATORVASTATIN
  12. HYDROCORTISONE 25 MG SUPPOSITORY [Concomitant]
  13. METFORMIN [Concomitant]
     Active Substance: METFORMIN HYDROCHLORIDE
  14. NAPROXEN 220 MG [Concomitant]
     Active Substance: NAPROXEN

REACTIONS (4)
  - Rash erythematous [None]
  - Skin weeping [None]
  - Genital rash [None]
  - Rash pruritic [None]

NARRATIVE: CASE EVENT DATE: 20191114
